FAERS Safety Report 14899468 (Version 1)
Quarter: 2018Q2

REPORT INFORMATION
  Report Type: Report from Study
  Country: DE (occurrence: DE)
  Receive Date: 20180516
  Receipt Date: 20180516
  Transmission Date: 20180711
  Serious: Yes (Hospitalization)
  Sender: FDA-Public Use
  Company Number: DE-BIOGEN-2017BI00499887

PATIENT
  Age: 38 Year
  Sex: Female
  Weight: 85 kg

DRUGS (5)
  1. TYSABRI [Suspect]
     Active Substance: NATALIZUMAB
     Indication: MULTIPLE SCLEROSIS
     Route: 042
     Dates: start: 20130910
  2. LYRICA [Concomitant]
     Active Substance: PREGABALIN
     Indication: NEURALGIA
     Route: 048
     Dates: start: 20130930
  3. CIPRALEX [Concomitant]
     Active Substance: ESCITALOPRAM OXALATE
     Indication: PRODUCT USED FOR UNKNOWN INDICATION
     Dosage: 1.5-0-0
     Route: 048
     Dates: start: 20110504
  4. SUMATRIPAN [Concomitant]
     Indication: MIGRAINE
     Route: 048
  5. SATIVEX [Concomitant]
     Active Substance: NABIXIMOLS
     Indication: PARESIS
     Dosage: 2-0-4 PUFFS
     Route: 048
     Dates: start: 20140102

REACTIONS (4)
  - Neurogenic bladder [Not Recovered/Not Resolved]
  - Vitamin D deficiency [Not Recovered/Not Resolved]
  - Folate deficiency [Not Recovered/Not Resolved]
  - Vitamin B12 deficiency [Not Recovered/Not Resolved]

NARRATIVE: CASE EVENT DATE: 20171006
